FAERS Safety Report 12439504 (Version 2)
Quarter: 2016Q2

REPORT INFORMATION
  Report Type: Spontaneous
  Country: US (occurrence: US)
  Receive Date: 20160606
  Receipt Date: 20160607
  Transmission Date: 20160815
  Serious: No
  Sender: FDA-Public Use
  Company Number: US-GILEAD-2016-0211019

PATIENT
  Age: 74 Year
  Sex: Female

DRUGS (2)
  1. LETAIRIS [Suspect]
     Active Substance: AMBRISENTAN
     Indication: PRODUCT USED FOR UNKNOWN INDICATION
     Route: 065
  2. ADCIRCA [Concomitant]
     Active Substance: TADALAFIL

REACTIONS (4)
  - Mucous stools [Unknown]
  - Defaecation urgency [Unknown]
  - Anal incontinence [Unknown]
  - Abnormal faeces [Unknown]
